FAERS Safety Report 14925794 (Version 1)
Quarter: 2018Q2

REPORT INFORMATION
  Report Type: Spontaneous
  Country: FR (occurrence: FR)
  Receive Date: 20180522
  Receipt Date: 20180522
  Transmission Date: 20180711
  Serious: Yes (Hospitalization)
  Sender: FDA-Public Use
  Company Number: FR-ANIPHARMA-2018-FR-000049

PATIENT
  Age: 76 Year
  Sex: Female

DRUGS (2)
  1. ACUPAN [Concomitant]
     Active Substance: NEFOPAM HYDROCHLORIDE
  2. CANDESARTAN HCT [Suspect]
     Active Substance: CANDESARTAN CILEXETIL\HYDROCHLOROTHIAZIDE
     Indication: HYPERTENSION
     Dosage: 8/12.5 MG DAILY
     Route: 048

REACTIONS (15)
  - Fall [Unknown]
  - Tachycardia [Unknown]
  - Vomiting [Unknown]
  - Basal cell carcinoma [Unknown]
  - Headache [Unknown]
  - Anger [Unknown]
  - Drug dose omission [Unknown]
  - Product substitution issue [Unknown]
  - Road traffic accident [Unknown]
  - Crying [Unknown]
  - Fractured coccyx [Unknown]
  - Hypertension [Unknown]
  - Blood pressure abnormal [Unknown]
  - Anxiety [Unknown]
  - Cervicobrachial syndrome [Unknown]

NARRATIVE: CASE EVENT DATE: 20170716
